FAERS Safety Report 9413439 (Version 2)
Quarter: 2013Q3

REPORT INFORMATION
  Report Type: Spontaneous
  Country: GB (occurrence: GB)
  Receive Date: 20130722
  Receipt Date: 20130802
  Transmission Date: 20140515
  Serious: Yes (Hospitalization)
  Sender: FDA-Public Use
  Company Number: GB-B.I. PHARMACEUTICALS,INC./RIDGEFIELD-2013-UK-01428UK

PATIENT
  Age: 77 Year
  Sex: Male
  Weight: 94 kg

DRUGS (12)
  1. PRADAXA [Suspect]
     Indication: CEREBROVASCULAR ACCIDENT PROPHYLAXIS
     Dosage: 110 MG
     Route: 048
     Dates: start: 20130627, end: 20130707
  2. PRADAXA [Suspect]
     Indication: ATRIAL FIBRILLATION
  3. FINASTERIDE [Concomitant]
     Dosage: 5 MG
     Route: 048
  4. ALLOPURINOL [Concomitant]
     Dosage: 100 MG
     Route: 048
  5. MONOMIL XL [Concomitant]
     Dosage: 120 MG
     Route: 048
  6. RAMIPRIL [Concomitant]
     Dosage: 5 MG
     Route: 048
  7. ADIZEM XL [Concomitant]
     Dosage: 180 MG
     Route: 048
  8. BUMETANIDE [Concomitant]
     Dosage: 1 MG
     Route: 048
  9. ESOMEPRAZOLE [Concomitant]
     Dosage: 20 MG
     Route: 048
  10. ATENOLOL [Concomitant]
     Indication: MYOCARDIAL ISCHAEMIA
     Dosage: 50 MG
     Route: 048
  11. NICORANDIL [Concomitant]
     Dosage: 40 MG
     Route: 048
  12. GLYCERYL TRINITRATE [Concomitant]
     Indication: ANGINA PECTORIS
     Dosage: DOSE PUMP SUBLINGUAL SPRAY
     Route: 060

REACTIONS (3)
  - Syncope [Recovered/Resolved]
  - Dyspnoea [Unknown]
  - Renal impairment [Unknown]
